FAERS Safety Report 16789902 (Version 1)
Quarter: 2019Q3

REPORT INFORMATION
  Report Type: Spontaneous
  Country: US (occurrence: US)
  Receive Date: 20190910
  Receipt Date: 20190910
  Transmission Date: 20191005
  Serious: No
  Sender: FDA-Public Use
  Company Number: US-ITALFARMACO SPA-2074236

PATIENT
  Age: 49 Year
  Sex: Male

DRUGS (5)
  1. MAGNESIUM CITRATE. [Concomitant]
     Active Substance: MAGNESIUM CITRATE
  2. SENNA [Concomitant]
     Active Substance: SENNA LEAF\SENNOSIDES\SENNOSIDES A AND B
  3. BACLOFEN. [Concomitant]
     Active Substance: BACLOFEN
  4. GUAIFENESIN. [Concomitant]
     Active Substance: GUAIFENESIN
  5. TIGLUTIK [Suspect]
     Active Substance: RILUZOLE
     Indication: AMYOTROPHIC LATERAL SCLEROSIS
     Route: 048

REACTIONS (4)
  - Pleural effusion [Recovering/Resolving]
  - Hypertension [Recovering/Resolving]
  - Oedema [Recovering/Resolving]
  - Speech disorder [Recovering/Resolving]
